FAERS Safety Report 16333277 (Version 1)
Quarter: 2019Q2

REPORT INFORMATION
  Report Type: Spontaneous
  Country: DE (occurrence: DE)
  Receive Date: 20190520
  Receipt Date: 20190520
  Transmission Date: 20190711
  Serious: Yes (Other)
  Sender: FDA-Public Use
  Company Number: PHHY2019DE115061

PATIENT
  Age: 46 Year
  Sex: Male

DRUGS (1)
  1. CANDESARTAN PLUS - 1 A PHARMA [Suspect]
     Active Substance: CANDESARTAN CILEXETIL\HYDROCHLOROTHIAZIDE
     Indication: PRODUCT USED FOR UNKNOWN INDICATION
     Dosage: UNK
     Route: 065
     Dates: start: 201905

REACTIONS (2)
  - Headache [Unknown]
  - Arrhythmia [Unknown]

NARRATIVE: CASE EVENT DATE: 201905
